FAERS Safety Report 24414387 (Version 3)
Quarter: 2024Q4

REPORT INFORMATION
  Report Type: Spontaneous
  Country: US (occurrence: US)
  Receive Date: 20241009
  Receipt Date: 20241014
  Transmission Date: 20250114
  Serious: Yes (Life-Threatening, Hospitalization)
  Sender: STRIDES
  Company Number: None

PATIENT
  Age: 34 Year
  Sex: Female

DRUGS (7)
  1. PREDNISOLONE [Suspect]
     Active Substance: PREDNISOLONE
     Indication: Neurosarcoidosis
     Dosage: UNK
     Route: 065
     Dates: start: 202305, end: 2024
  2. PREDNISOLONE [Suspect]
     Active Substance: PREDNISOLONE
     Dosage: UNK (HIGH DOSE)
     Route: 065
  3. DEXAMETHASONE [Suspect]
     Active Substance: DEXAMETHASONE
     Indication: Neurosarcoidosis
     Dosage: UNK (HIGH DOSE)
     Route: 065
     Dates: start: 202311, end: 2023
  4. DEXAMETHASONE [Suspect]
     Active Substance: DEXAMETHASONE
     Indication: Sarcoidosis
     Dosage: UNK (DOSE TAPERED)
     Route: 065
     Dates: start: 2023, end: 2024
  5. METHYLPREDNISOLONE [Suspect]
     Active Substance: METHYLPREDNISOLONE
     Indication: Neurosarcoidosis
     Dosage: UNK (PULSE DOSE)
     Route: 065
  6. METHYLPREDNISOLONE [Suspect]
     Active Substance: METHYLPREDNISOLONE
     Indication: Sarcoidosis
  7. ACETAZOLAMIDE [Concomitant]
     Active Substance: ACETAZOLAMIDE
     Indication: Product used for unknown indication
     Dosage: UNK
     Route: 065
     Dates: start: 2023

REACTIONS (8)
  - Hydrocephalus [Recovering/Resolving]
  - Myelopathy [Recovering/Resolving]
  - Cervical cord compression [Recovering/Resolving]
  - Amnesia [Recovering/Resolving]
  - Respiratory muscle weakness [Recovering/Resolving]
  - Meningitis fungal [Recovering/Resolving]
  - Disseminated blastomycosis [Recovering/Resolving]
  - Infection [Recovering/Resolving]

NARRATIVE: CASE EVENT DATE: 20230101
